FAERS Safety Report 13319083 (Version 1)
Quarter: 2017Q1

REPORT INFORMATION
  Report Type: Spontaneous
  Country: US (occurrence: US)
  Receive Date: 20170308
  Receipt Date: 20170308
  Transmission Date: 20170428
  Serious: No
  Sender: FDA-Public Use
  Company Number: US-AMGEN-USASP2016109031

PATIENT
  Age: 54 Year
  Sex: Male

DRUGS (2)
  1. SENSIPAR [Suspect]
     Active Substance: CINACALCET HYDROCHLORIDE
     Indication: HYPERPARATHYROIDISM SECONDARY
     Dosage: 30 MG, QD
     Route: 065
  2. HECTOROL [Suspect]
     Active Substance: DOXERCALCIFEROL
     Indication: PRODUCT USED FOR UNKNOWN INDICATION
     Dosage: 10 MG, 3 DAYS /WEEK UNK
     Route: 065
     Dates: start: 201412

REACTIONS (3)
  - Accidental overdose [Unknown]
  - Blood calcium increased [Unknown]
  - Blood parathyroid hormone abnormal [Recovered/Resolved]
